FAERS Safety Report 17186107 (Version 1)
Quarter: 2019Q4

REPORT INFORMATION
  Report Type: Report from Study
  Country: JP (occurrence: JP)
  Receive Date: 20191220
  Receipt Date: 20191220
  Transmission Date: 20200122
  Serious: Yes (Other)
  Sender: FDA-Public Use
  Company Number: JP-UCBSA-2019054800

PATIENT
  Sex: Female

DRUGS (1)
  1. LEVETIRACETAM. [Suspect]
     Active Substance: LEVETIRACETAM
     Indication: PRODUCT USED FOR UNKNOWN INDICATION
     Dosage: UNK
     Route: 048

REACTIONS (20)
  - Seizure [Unknown]
  - Depressed level of consciousness [Unknown]
  - Decreased appetite [Unknown]
  - Headache [Unknown]
  - Rebound effect [Unknown]
  - Rhabdomyolysis [Unknown]
  - Adverse reaction [Unknown]
  - Mood swings [Unknown]
  - Somnolence [Unknown]
  - Irritability [Unknown]
  - Drug ineffective [Unknown]
  - Malaise [Unknown]
  - Tremor [Unknown]
  - Weight decreased [Unknown]
  - Drug eruption [Unknown]
  - Memory impairment [Unknown]
  - Maternal exposure during pregnancy [Unknown]
  - Maternal exposure during breast feeding [Unknown]
  - Depressed mood [Unknown]
  - Withdrawal syndrome [Unknown]
